FAERS Safety Report 5910725-4 (Version None)
Quarter: 2008Q4

REPORT INFORMATION
  Report Type: 
  Country: None (occurrence: None)
  Receive Date: 20081007
  Receipt Date: 20080403
  Transmission Date: 20090506
  Serious: No
  Sender: FDA-Public Use
  Company Number: US-ASTRAZENECA-2008UW06700

PATIENT
  Sex: Female

DRUGS (1)
  1. ARIMIDEX [Suspect]
     Route: 048
     Dates: end: 20060101

REACTIONS (4)
  - ARTHROPATHY [None]
  - ASTHENIA [None]
  - IRRITABILITY [None]
  - PAIN [None]
